FAERS Safety Report 20760990 (Version 1)
Quarter: 2022Q2

REPORT INFORMATION
  Report Type: Spontaneous
  Country: CN (occurrence: None)
  Receive Date: 20220428
  Receipt Date: 20220428
  Transmission Date: 20220721
  Serious: Yes (Other)
  Sender: FDA-Public Use
  Company Number: CN-ROCHE-3080769

PATIENT
  Age: 77 Year
  Sex: Female
  Weight: 60 kg

DRUGS (14)
  1. AVASTIN [Suspect]
     Active Substance: BEVACIZUMAB
     Indication: Rectal cancer
     Dosage: 200/300MG WEEKLY ALTERNATELY
     Route: 041
     Dates: start: 20190603, end: 20191024
  2. AVASTIN [Suspect]
     Active Substance: BEVACIZUMAB
     Route: 041
     Dates: start: 20191120, end: 20200210
  3. AVASTIN [Suspect]
     Active Substance: BEVACIZUMAB
     Route: 041
     Dates: start: 20200306, end: 20200716
  4. AVASTIN [Suspect]
     Active Substance: BEVACIZUMAB
     Route: 065
     Dates: start: 20200813
  5. IRINOTECAN [Concomitant]
     Active Substance: IRINOTECAN
     Indication: Rectal cancer
     Route: 041
     Dates: start: 20190603, end: 20191024
  6. LEUCOVORIN CALCIUM [Concomitant]
     Active Substance: LEUCOVORIN CALCIUM
     Indication: Rectal cancer
     Route: 041
     Dates: start: 20190603, end: 20191024
  7. FLUOROURACIL [Concomitant]
     Active Substance: FLUOROURACIL
     Indication: Rectal cancer
     Route: 041
     Dates: start: 20190603, end: 20191024
  8. FLUOROURACIL [Concomitant]
     Active Substance: FLUOROURACIL
     Dates: start: 20191120, end: 20200210
  9. FLUOROURACIL [Concomitant]
     Active Substance: FLUOROURACIL
     Route: 041
     Dates: start: 20200306, end: 20200716
  10. FLUOROURACIL [Concomitant]
     Active Substance: FLUOROURACIL
     Dates: start: 20200813
  11. OXALIPLATIN [Concomitant]
     Active Substance: OXALIPLATIN
     Indication: Rectal cancer
     Route: 041
     Dates: start: 20200306, end: 20200716
  12. RALTITREXED [Concomitant]
     Active Substance: RALTITREXED
     Indication: Rectal cancer
     Dates: start: 20201119
  13. FRUQUINTINIB [Concomitant]
     Active Substance: FRUQUINTINIB
     Indication: Rectal cancer
     Dosage: D1, D21
     Route: 048
     Dates: start: 20201119
  14. REGORAFENIB [Concomitant]
     Active Substance: REGORAFENIB
     Indication: Rectal cancer
     Dates: start: 20211021, end: 20220322

REACTIONS (9)
  - Diarrhoea [Recovered/Resolved]
  - Myelosuppression [Unknown]
  - Hepatic function abnormal [Recovering/Resolving]
  - Neuropathy peripheral [Unknown]
  - Neurotoxicity [Unknown]
  - Fatigue [Unknown]
  - Nausea [Unknown]
  - Vomiting [Unknown]
  - Renal failure [Unknown]
